FAERS Safety Report 11092965 (Version 1)
Quarter: 2015Q2

REPORT INFORMATION
  Report Type: Spontaneous
  Country: US (occurrence: US)
  Receive Date: 20150506
  Receipt Date: 20150506
  Transmission Date: 20150821
  Serious: Yes (Other)
  Sender: FDA-Public Use
  Company Number: US-TEVA-560018USA

PATIENT

DRUGS (1)
  1. COPAXONE [Suspect]
     Active Substance: GLATIRAMER ACETATE
     Indication: MULTIPLE SCLEROSIS

REACTIONS (6)
  - Flushing [Unknown]
  - Urticaria [Unknown]
  - Feeling abnormal [Unknown]
  - Vomiting [Unknown]
  - Palpitations [Unknown]
  - Hypersensitivity [Unknown]
